FAERS Safety Report 6985066-7 (Version None)
Quarter: 2010Q3

REPORT INFORMATION
  Report Type: 
  Country: None (occurrence: None)
  Receive Date: 20100915
  Receipt Date: 20100906
  Transmission Date: 20110219
  Serious: Yes (Hospitalization)
  Sender: FDA-Public Use
  Company Number: PHHY2010ES59417

PATIENT
  Age: 82 Year
  Sex: Female

DRUGS (2)
  1. EXELON [Suspect]
     Dosage: 6 ML
     Route: 048
  2. EXELON [Suspect]
     Dosage: ONE DOSE 6 ML / 12 H DURING ONE WEEK
     Route: 048

REACTIONS (3)
  - ASPIRATION BRONCHIAL [None]
  - DRUG ADMINISTRATION ERROR [None]
  - SOMNOLENCE [None]
